FAERS Safety Report 20153942 (Version 1)
Quarter: 2021Q4

REPORT INFORMATION
  Report Type: Spontaneous
  Country: US (occurrence: US)
  Receive Date: 20211207
  Receipt Date: 20211207
  Transmission Date: 20220303
  Serious: Yes (Hospitalization, Other)
  Sender: FDA-Public Use
  Company Number: US-SA-2021SA393165

PATIENT
  Age: 78 Year
  Sex: Female

DRUGS (3)
  1. HYDROCORTISONE [Suspect]
     Active Substance: HYDROCORTISONE
  2. FLUDROCORTISONE [Suspect]
     Active Substance: FLUDROCORTISONE
  3. PANTOPRAZOLE [Concomitant]
     Active Substance: PANTOPRAZOLE
     Indication: Duodenal ulcer

REACTIONS (8)
  - Peptic ulcer [Recovered/Resolved]
  - Abdominal pain upper [Recovered/Resolved]
  - Diarrhoea [Recovered/Resolved]
  - Faeces discoloured [Recovered/Resolved]
  - Melaena [Recovered/Resolved]
  - Gastritis [Recovered/Resolved]
  - Duodenal ulcer [Recovered/Resolved]
  - Candida infection [Recovered/Resolved]
